FAERS Safety Report 20664660 (Version 6)
Quarter: 2022Q2

REPORT INFORMATION
  Report Type: Report from Study
  Country: US (occurrence: US)
  Receive Date: 20220401
  Receipt Date: 20220527
  Transmission Date: 20220721
  Serious: No
  Sender: FDA-Public Use
  Company Number: US-NOVARTISTESTPH-NVSC2022US072002

PATIENT
  Sex: Male

DRUGS (1)
  1. KESIMPTA [Suspect]
     Active Substance: OFATUMUMAB
     Indication: Multiple sclerosis
     Dosage: UNK
     Route: 058
     Dates: start: 20220313

REACTIONS (8)
  - Fatigue [Not Recovered/Not Resolved]
  - Balance disorder [Recovering/Resolving]
  - Limb discomfort [Unknown]
  - Productive cough [Unknown]
  - Pain in extremity [Unknown]
  - Hypoaesthesia [Unknown]
  - Headache [Unknown]
  - Gait disturbance [Unknown]
